FAERS Safety Report 8821444 (Version 2)
Quarter: 2012Q4

REPORT INFORMATION
  Report Type: 
  Country: DE (occurrence: FR)
  Receive Date: 20121002
  Receipt Date: 20121230
  Transmission Date: 20130627
  Serious: Yes (Other)
  Sender: FDA-Public Use
  Company Number: FR-ALEXION PHARMACEUTICALS INC.-A201201835

PATIENT
  Age: 23 Year

DRUGS (1)
  1. SOLIRIS 300MG [Suspect]
     Indication: HAEMOLYTIC URAEMIC SYNDROME
     Dosage: Switched to Soliris at 1 month posttransplant
     Route: 042

REACTIONS (5)
  - Haemolytic uraemic syndrome [Recovered/Resolved]
  - Condition aggravated [Unknown]
  - Renal vascular thrombosis [Unknown]
  - Endothelial dysfunction [Unknown]
  - Thrombotic microangiopathy [Unknown]
